FAERS Safety Report 5402093-1 (Version None)
Quarter: 2007Q3

REPORT INFORMATION
  Report Type: 
  Country: None (occurrence: None)
  Receive Date: 20070801
  Receipt Date: 20070719
  Transmission Date: 20080115
  Serious: Yes (Death)
  Sender: FDA-Public Use
  Company Number: BR-JNJFOC-20070604900

PATIENT
  Age: 38 Year
  Sex: Female
  Weight: 56 kg

DRUGS (2)
  1. REMICADE [Suspect]
     Indication: PSORIASIS
     Route: 042
  2. ACITRETIN [Concomitant]
     Indication: PSORIASIS
     Route: 048

REACTIONS (5)
  - ASTHENIA [None]
  - BONE MARROW FAILURE [None]
  - HAEMORRHAGE [None]
  - HEADACHE [None]
  - MYALGIA [None]
